FAERS Safety Report 23748766 (Version 1)
Quarter: 2024Q2

REPORT INFORMATION
  Report Type: Spontaneous
  Country: CN (occurrence: None)
  Receive Date: 20240416
  Receipt Date: 20240416
  Transmission Date: 20240716
  Serious: Yes (Other)
  Sender: FDA-Public Use
  Company Number: 2024A083729

PATIENT
  Age: 57 Year
  Sex: Male

DRUGS (7)
  1. GEFITINIB [Suspect]
     Active Substance: GEFITINIB
     Indication: Lung adenocarcinoma stage III
     Route: 048
  2. OSIMERTINIB [Suspect]
     Active Substance: OSIMERTINIB
     Indication: Lung adenocarcinoma stage III
     Route: 048
     Dates: start: 202007
  3. CATEQUENTINIB [Suspect]
     Active Substance: CATEQUENTINIB
     Indication: Lung adenocarcinoma stage III
     Dates: start: 202204, end: 202210
  4. ICOTINIB [Suspect]
     Active Substance: ICOTINIB
     Indication: Lung adenocarcinoma stage III
     Dates: start: 201805
  5. CISPLATIN\PEMETREXED [Suspect]
     Active Substance: CISPLATIN\PEMETREXED
     Indication: Lung adenocarcinoma stage III
     Dosage: FOUR CYCLES
     Dates: end: 201702
  6. CISPLATIN\PEMETREXED [Suspect]
     Active Substance: CISPLATIN\PEMETREXED
     Indication: Lung adenocarcinoma stage III
     Dosage: THREE CYCLES ALONGSIDE BEVACIZUMAB
     Dates: start: 202004
  7. BEVACIZUMAB [Suspect]
     Active Substance: BEVACIZUMAB
     Indication: Lung adenocarcinoma stage III
     Dates: start: 202004

REACTIONS (5)
  - Drug resistance [Unknown]
  - Acquired gene mutation [Unknown]
  - Metastases to liver [Unknown]
  - Malignant neoplasm progression [Unknown]
  - Hypertension [Unknown]

NARRATIVE: CASE EVENT DATE: 20180501
